FAERS Safety Report 7187240-6 (Version None)
Quarter: 2010Q4

REPORT INFORMATION
  Report Type: 
  Country: None (occurrence: None)
  Receive Date: 20101222
  Receipt Date: 20101220
  Transmission Date: 20110411
  Serious: Yes (Death, Other)
  Sender: FDA-Public Use
  Company Number: US-AMGEN-USASP2010009517

PATIENT

DRUGS (4)
  1. NPLATE [Suspect]
     Indication: MYELODYSPLASTIC SYNDROME
     Dosage: 300 A?, UNK
     Dates: start: 20100716, end: 20100730
  2. NPLATE [Suspect]
     Indication: OVARIAN CANCER
  3. CORTICOSTEROIDS [Concomitant]
  4. IMMUNOGLOBULINS [Concomitant]

REACTIONS (4)
  - DEATH [None]
  - METASTASES TO CENTRAL NERVOUS SYSTEM [None]
  - MYELODYSPLASTIC SYNDROME [None]
  - OVARIAN CANCER METASTATIC [None]
